FAERS Safety Report 5723108-7 (Version None)
Quarter: 2008Q2

REPORT INFORMATION
  Report Type: 
  Country: None (occurrence: None)
  Receive Date: 20080430
  Receipt Date: 20080418
  Transmission Date: 20081010
  Serious: Yes (Hospitalization)
  Sender: FDA-Public Use
  Company Number: DE-ELI_LILLY_AND_COMPANY-DE200804005028

PATIENT
  Sex: Male

DRUGS (8)
  1. ALIMTA [Suspect]
     Indication: PLEURAL MESOTHELIOMA MALIGNANT ADVANCED
     Dosage: 500 MG/M2, 10 MIN INFUSION
     Route: 042
     Dates: start: 20080405, end: 20080405
  2. FOLIC ACID [Concomitant]
     Dosage: 0.4 MG, UNKNOWN
     Route: 065
  3. VITAMIN B-12 [Concomitant]
     Dosage: UNK, UNKNOWN
     Route: 065
  4. ASPIRIN [Concomitant]
     Dosage: 100 MG, DAILY (1/D)
     Route: 065
  5. MST 10 [Concomitant]
     Dosage: 2 D/F, DAILY (1/D)
     Route: 065
  6. NOVALGINE                          /00039501/ [Concomitant]
     Dosage: 20 D/F, 4/D
     Route: 048
  7. PANTOPRAZOLE SODIUM [Concomitant]
     Dosage: 1 D/F, DAILY (1/D)
     Route: 065
  8. SIMVASTATIN [Concomitant]
     Dosage: 0.5 D/F, DAILY (1/D)
     Route: 065

REACTIONS (4)
  - ASCITES [None]
  - OEDEMA PERIPHERAL [None]
  - PENILE OEDEMA [None]
  - PERICARDIAL EFFUSION [None]
